FAERS Safety Report 8380952-8 (Version None)
Quarter: 2012Q2

REPORT INFORMATION
  Report Type: 
  Country: None (occurrence: None)
  Receive Date: 20120515
  Receipt Date: 20120508
  Transmission Date: 20120825
  Serious: Yes (Other)
  Sender: FDA-Public Use
  Company Number: AECAN201200243

PATIENT
  Age: 77 Year
  Sex: Male

DRUGS (1)
  1. PLASBUMIN [Suspect]
     Indication: HYPOVOLAEMIA
     Dosage: 1X; IV
     Route: 042
     Dates: start: 20120420, end: 20120420

REACTIONS (3)
  - HYPOTENSION [None]
  - ANAPHYLACTOID REACTION [None]
  - INFUSION RELATED REACTION [None]
